FAERS Safety Report 4511799-8 (Version None)
Quarter: 2004Q4

REPORT INFORMATION
  Report Type: 
  Country: None (occurrence: None)
  Receive Date: 20041123
  Receipt Date: 20041123
  Transmission Date: 20050328
  Serious: Yes (Other)
  Sender: FDA-Public Use
  Company Number: None

PATIENT
  Age: 73 Year
  Sex: Male
  Weight: 117.9 kg

DRUGS (7)
  1. SIMVASTATIN [Suspect]
  2. INSULIN NOVOLIN 70/30 (NPH/REG) [Concomitant]
  3. FUROSEMIDE [Concomitant]
  4. METOPROLOL TARTRATE [Concomitant]
  5. FINASTERIDE [Concomitant]
  6. LISINOPRIL [Concomitant]
  7. FELODIPINE [Concomitant]

REACTIONS (1)
  - MYALGIA [None]
